FAERS Safety Report 4710818-3 (Version None)
Quarter: 2005Q3

REPORT INFORMATION
  Report Type: 
  Country: None (occurrence: None)
  Receive Date: 20050708
  Receipt Date: 20050629
  Transmission Date: 20060218
  Serious: Yes (Hospitalization)
  Sender: FDA-Public Use
  Company Number: GXKR2005US01286

PATIENT
  Age: 36 Year
  Sex: Female

DRUGS (6)
  1. MIRTAZAPINE [Suspect]
     Dosage: 30 MG,
  2. TRAMADOL HCL [Suspect]
     Indication: DEPRESSION
     Dosage: 750 MG (PRESCRIBED DOSE 50 MG EVERY 6 H PRN), ORAL
     Route: 048
  3. GABAPENTIN [Concomitant]
  4. ZOLPIDEM TARTRATE [Concomitant]
  5. LEVOTHYROXINE SODIUM [Concomitant]
  6. CONJUCTED OESTROGEN [Concomitant]

REACTIONS (18)
  - AMNESTIC DISORDER [None]
  - BLOOD PRESSURE INCREASED [None]
  - CONFUSIONAL STATE [None]
  - DRUG INTERACTION [None]
  - DYSPNOEA [None]
  - FLUSHING [None]
  - GRAND MAL CONVULSION [None]
  - HEADACHE [None]
  - HYPERHIDROSIS [None]
  - INTENTIONAL MISUSE [None]
  - LETHARGY [None]
  - LOSS OF CONSCIOUSNESS [None]
  - OVERDOSE [None]
  - PYREXIA [None]
  - SALIVARY HYPERSECRETION [None]
  - SEROTONIN SYNDROME [None]
  - TREMOR [None]
  - UNRESPONSIVE TO PAIN STIMULI [None]
